FAERS Safety Report 6427652-9 (Version None)
Quarter: 2009Q4

REPORT INFORMATION
  Report Type: 
  Country: None (occurrence: None)
  Receive Date: 20091104
  Receipt Date: 20091021
  Transmission Date: 20100525
  Serious: Yes (Hospitalization)
  Sender: FDA-Public Use
  Company Number: FR-GENENTECH-293038

PATIENT
  Sex: Female

DRUGS (3)
  1. MABTHERA [Suspect]
     Indication: POLYNEUROPATHY CHRONIC
     Dosage: 1000 MG, UNK
     Route: 042
     Dates: start: 20071027, end: 20071107
  2. SOLU-MEDROL [Suspect]
     Indication: PREMEDICATION
     Dosage: 60 MG, UNK
     Route: 042
     Dates: start: 20071107, end: 20071107
  3. POLARAMINE [Suspect]
     Indication: PREMEDICATION
     Dosage: 1 DF, UNK
     Route: 042
     Dates: start: 20071107, end: 20071107

REACTIONS (2)
  - ABDOMINAL PAIN [None]
  - BACK PAIN [None]
